FAERS Safety Report 20565305 (Version 3)
Quarter: 2022Q3

REPORT INFORMATION
  Report Type: Other
  Country: JP (occurrence: JP)
  Receive Date: 20220308
  Receipt Date: 20220824
  Transmission Date: 20221027
  Serious: Yes (Hospitalization)
  Sender: FDA-Public Use
  Company Number: JP-CHUGAI-2022007048

PATIENT
  Age: 74 Year
  Sex: Male
  Weight: 48.5 kg

DRUGS (4)
  1. ATEZOLIZUMAB [Suspect]
     Active Substance: ATEZOLIZUMAB
     Indication: Lung adenocarcinoma
     Dosage: 560 MILLIGRAM
     Route: 041
     Dates: start: 20210225, end: 20211115
  2. CARBOPLATIN [Concomitant]
     Active Substance: CARBOPLATIN
     Indication: Lung adenocarcinoma
     Dosage: 560 MILLIGRAM
     Route: 041
     Dates: start: 20210225, end: 20210524
  3. PEMETREXED [Concomitant]
     Active Substance: PEMETREXED
     Indication: Lung adenocarcinoma
     Dosage: 725 MILLIGRAM
     Route: 041
     Dates: start: 20210225, end: 20210524
  4. PEMETREXED [Concomitant]
     Active Substance: PEMETREXED
     Dosage: 725 MILLIGRAM
     Route: 041
     Dates: start: 20210621, end: 20211115

REACTIONS (1)
  - Pulmonary toxicity [Recovering/Resolving]

NARRATIVE: CASE EVENT DATE: 20211213
